FAERS Safety Report 9471910 (Version 1)
Quarter: 2013Q3

REPORT INFORMATION
  Report Type: Spontaneous
  Country: CA (occurrence: CA)
  Receive Date: 20130823
  Receipt Date: 20130823
  Transmission Date: 20140515
  Serious: Yes (Death)
  Sender: FDA-Public Use
  Company Number: CA-ROCHE-1264145

PATIENT
  Age: 2 Year
  Sex: Female

DRUGS (11)
  1. MYCOPHENOLATE MOFETIL [Suspect]
     Indication: PRODUCT USED FOR UNKNOWN INDICATION
     Route: 065
  2. CYCLOSPORINE [Suspect]
     Indication: PRODUCT USED FOR UNKNOWN INDICATION
     Route: 065
  3. PREDNISOLONE [Suspect]
     Indication: PRODUCT USED FOR UNKNOWN INDICATION
     Route: 065
  4. THYMOGLOBULIN [Suspect]
     Indication: PRODUCT USED FOR UNKNOWN INDICATION
     Route: 042
  5. ACETYLSALICYLIC ACID [Concomitant]
     Route: 065
  6. CO-TRIMOXAZOLE [Concomitant]
     Route: 065
  7. FUROSEMIDE [Concomitant]
     Route: 065
  8. NOVO-SPIROZINE [Concomitant]
     Route: 065
  9. NYSTATIN [Concomitant]
     Route: 065
  10. RANITIDINE [Concomitant]
     Route: 065
  11. METHYLPREDNISOLONE [Concomitant]
     Route: 065

REACTIONS (8)
  - Circulatory collapse [Fatal]
  - Eosinophilic myocarditis [Fatal]
  - Heart transplant rejection [Fatal]
  - Pseudomonas infection [Fatal]
  - Eosinophilia [Fatal]
  - Sudden cardiac death [Fatal]
  - Transplant rejection [Fatal]
  - Wound infection pseudomonas [Fatal]
